FAERS Safety Report 25597978 (Version 2)
Quarter: 2025Q3

REPORT INFORMATION
  Report Type: Spontaneous
  Country: US (occurrence: US)
  Receive Date: 20250723
  Receipt Date: 20250729
  Transmission Date: 20251021
  Serious: Yes (Life-Threatening, Hospitalization, Other)
  Sender: CIPLA
  Company Number: US-CIPLA (EU) LIMITED-2025US08930

PATIENT

DRUGS (2)
  1. LISINOPRIL [Suspect]
     Active Substance: LISINOPRIL
     Route: 065
  2. AMLODIPINE [Suspect]
     Active Substance: AMLODIPINE BESYLATE
     Route: 065

REACTIONS (6)
  - Acute respiratory failure [Recovering/Resolving]
  - Cardiogenic shock [Recovering/Resolving]
  - Metabolic acidosis [Recovering/Resolving]
  - Intentional overdose [Unknown]
  - Electrolyte imbalance [Recovering/Resolving]
  - Hypotension [Recovering/Resolving]
